FAERS Safety Report 5048550-1 (Version None)
Quarter: 2006Q3

REPORT INFORMATION
  Report Type: 
  Country: None (occurrence: None)
  Receive Date: 20060705
  Receipt Date: 20060615
  Transmission Date: 20061208
  Serious: Yes (Hospitalization)
  Sender: FDA-Public Use
  Company Number: FR200606003726

PATIENT
  Age: 75 Year
  Sex: Female

DRUGS (6)
  1. FORTEO [Suspect]
     Indication: OSTEOPOROSIS
     Dosage: 20 UG, DAILY (1/D), SUBCUTANEOUS
     Route: 058
     Dates: start: 20050728
  2. FORTEO [Concomitant]
  3. LASIX [Concomitant]
  4. ZESTRIL /USA/ (LISINOPRIL) [Concomitant]
  5. CORDARONE [Concomitant]
  6. PREVISCAN (FLUINDIONE) [Concomitant]

REACTIONS (3)
  - ACUTE PULMONARY OEDEMA [None]
  - DYSPNOEA [None]
  - SYNCOPE VASOVAGAL [None]
